FAERS Safety Report 6074262-1 (Version None)
Quarter: 2009Q1

REPORT INFORMATION
  Report Type: 
  Country: None (occurrence: None)
  Receive Date: 20090211
  Receipt Date: 20090205
  Transmission Date: 20090719
  Serious: Yes (Other)
  Sender: FDA-Public Use
  Company Number: PHHY2009CA04280

PATIENT
  Age: 68 Year
  Sex: Male

DRUGS (7)
  1. RASILEZ [Suspect]
     Indication: RENAL DISORDER
     Dosage: 150 MG  QD
     Route: 048
  2. ATENOLOL [Concomitant]
     Indication: HYPERTENSION
  3. ALTACE [Concomitant]
     Indication: HYPERTENSION
     Dosage: UNK
  4. ELTROXIN ^GLAXO^ [Concomitant]
  5. LIPITOR [Concomitant]
  6. CLONAZEPAM [Concomitant]
  7. ASPIRIN [Concomitant]

REACTIONS (2)
  - CARDIAC ASSISTANCE DEVICE USER [None]
  - HEART RATE DECREASED [None]
